FAERS Safety Report 16536212 (Version 7)
Quarter: 2019Q4

REPORT INFORMATION
  Report Type: Spontaneous
  Country: US (occurrence: US)
  Receive Date: 20190705
  Receipt Date: 20191107
  Transmission Date: 20200122
  Serious: Yes (Other)
  Sender: FDA-Public Use
  Company Number: US-PFIZER INC-2019287384

PATIENT
  Age: 88 Year
  Sex: Female
  Weight: 72.57 kg

DRUGS (2)
  1. NORVASC [Suspect]
     Active Substance: AMLODIPINE BESYLATE
     Dosage: 5 MG, 1X/DAY
     Route: 048
  2. LIPITOR [Suspect]
     Active Substance: ATORVASTATIN CALCIUM
     Dosage: 10 MG, 1X/DAY
     Route: 048

REACTIONS (7)
  - Pneumonia [Unknown]
  - Gait inability [Not Recovered/Not Resolved]
  - Dementia [Unknown]
  - Cough [Not Recovered/Not Resolved]
  - Malaise [Unknown]
  - Amnesia [Unknown]
  - Choking [Not Recovered/Not Resolved]
